FAERS Safety Report 14981269 (Version 2)
Quarter: 2018Q2

REPORT INFORMATION
  Report Type: Report from Study
  Country: RU (occurrence: RU)
  Receive Date: 20180606
  Receipt Date: 20180620
  Transmission Date: 20180711
  Serious: Yes (Other)
  Sender: FDA-Public Use
  Company Number: RU-GILEAD-2018-0342142

PATIENT
  Age: 62 Year
  Sex: Male

DRUGS (4)
  1. DACLATASVIR. [Suspect]
     Active Substance: DACLATASVIR
     Indication: HEPATITIS C
     Dosage: UNK
     Route: 065
  2. RIBAVIRIN. [Suspect]
     Active Substance: RIBAVIRIN
     Indication: HEPATITIS C
     Dosage: UNK
     Route: 065
  3. SOFOSBUVIR [Suspect]
     Active Substance: SOFOSBUVIR
     Indication: HEPATITIS C
     Dosage: UNK
     Route: 065
  4. TACROLIMUS. [Concomitant]
     Active Substance: TACROLIMUS
     Indication: IMMUNOSUPPRESSION
     Dosage: UNK

REACTIONS (5)
  - Drug ineffective [Unknown]
  - Genotype drug resistance test positive [Unknown]
  - Hepatitis C [Unknown]
  - Hepatocellular carcinoma [Unknown]
  - Hepatitis B reactivation [Unknown]
